FAERS Safety Report 25403003 (Version 1)
Quarter: 2025Q2

REPORT INFORMATION
  Report Type: Spontaneous
  Country: US (occurrence: US)
  Receive Date: 20250605
  Receipt Date: 20250605
  Transmission Date: 20250717
  Serious: No
  Sender: SANOFI AVENTIS
  Company Number: US-SA-2025SA157882

PATIENT
  Age: 20 Year

DRUGS (2)
  1. LANTUS [Suspect]
     Active Substance: INSULIN GLARGINE
     Indication: Diabetic complication
     Dosage: 20 IU, QD
     Route: 058
  2. ADMELOG [Suspect]
     Active Substance: INSULIN LISPRO
     Indication: Diabetic complication
     Dosage: 5 IU, TID
     Route: 058

REACTIONS (1)
  - Off label use [Unknown]
